FAERS Safety Report 5775732-3 (Version None)
Quarter: 2008Q2

REPORT INFORMATION
  Report Type: 
  Country: None (occurrence: None)
  Receive Date: 20080617
  Receipt Date: 20080605
  Transmission Date: 20081010
  Serious: Yes (Other)
  Sender: FDA-Public Use
  Company Number: US-PFIZER INC-2007069189

PATIENT
  Sex: Female
  Weight: 59 kg

DRUGS (12)
  1. CHANTIX [Suspect]
     Indication: SMOKING CESSATION THERAPY
  2. LUNESTA [Concomitant]
  3. CLONAZEPAM [Concomitant]
  4. PHENOBARBITAL TAB [Concomitant]
  5. TOPROL-XL [Concomitant]
  6. SODIUM BICARBONATE [Concomitant]
  7. LIDOCAINE [Concomitant]
  8. DURAGESIC-100 [Concomitant]
  9. OXYCODONE HCL [Concomitant]
  10. CYMBALTA [Concomitant]
  11. TOPAMAX [Concomitant]
  12. OPIOIDS [Concomitant]

REACTIONS (5)
  - BURNS SECOND DEGREE [None]
  - CONVULSION [None]
  - PAIN IN EXTREMITY [None]
  - SLEEP DISORDER [None]
  - SYNCOPE [None]
